FAERS Safety Report 8388065-6 (Version None)
Quarter: 2012Q2

REPORT INFORMATION
  Report Type: 
  Country: None (occurrence: None)
  Receive Date: 20120525
  Receipt Date: 20120518
  Transmission Date: 20120825
  Serious: Yes (Hospitalization)
  Sender: FDA-Public Use
  Company Number: FR-ABBOTT-12P-056-0936596-00

PATIENT
  Sex: Female

DRUGS (4)
  1. KALETRA [Suspect]
     Indication: ANTIVIRAL PROPHYLAXIS
  2. KALETRA [Suspect]
     Indication: PROPHYLAXIS AGAINST HIV INFECTION
     Dosage: DF 200/50 MG
     Route: 048
     Dates: start: 20110525, end: 20110625
  3. TRUVADA [Concomitant]
     Indication: PROPHYLAXIS AGAINST HIV INFECTION
     Dosage: DF 200/245 MG
     Route: 048
     Dates: start: 20110525, end: 20110628
  4. TRUVADA [Concomitant]
     Indication: ANTIVIRAL PROPHYLAXIS

REACTIONS (2)
  - HEPATITIS [None]
  - GAMMA-GLUTAMYLTRANSFERASE INCREASED [None]
